FAERS Safety Report 19227680 (Version 3)
Quarter: 2021Q3

REPORT INFORMATION
  Report Type: Other
  Country: US (occurrence: US)
  Receive Date: 20210507
  Receipt Date: 20210702
  Transmission Date: 20211014
  Serious: No
  Sender: FDA-Public Use
  Company Number: US-NEUROCRINE BIOSCIENCES INC.-2021NBI02047

PATIENT

DRUGS (2)
  1. INGREZZA [Suspect]
     Active Substance: VALBENAZINE
     Indication: TARDIVE DYSKINESIA
     Dosage: 40 MILLIGRAM, QD
     Route: 048
     Dates: start: 20200617, end: 20200623
  2. INGREZZA [Suspect]
     Active Substance: VALBENAZINE
     Dosage: 80 MILLIGRAM, QD (40 MG CAPSULES X 2)
     Route: 048
     Dates: start: 20200624

REACTIONS (7)
  - Loss of personal independence in daily activities [Unknown]
  - Restlessness [Unknown]
  - Asthenia [Unknown]
  - Arthralgia [Unknown]
  - Treatment noncompliance [Unknown]
  - Tremor [Unknown]
  - Adverse drug reaction [Unknown]
